FAERS Safety Report 6194241-3 (Version None)
Quarter: 2009Q2

REPORT INFORMATION
  Report Type: 
  Country: None (occurrence: None)
  Receive Date: 20090511
  Receipt Date: 20090505
  Transmission Date: 20091009
  Serious: Yes (Life-Threatening, Other)
  Sender: FDA-Public Use
  Company Number: THYM-1001046

PATIENT
  Age: 70 Year
  Sex: Female

DRUGS (14)
  1. ANTI-THYMOCYTE GLOBULIN RABBIT NOS [Suspect]
     Indication: APLASTIC ANAEMIA
     Dosage: INTRAVENOUS
     Route: 042
     Dates: start: 20090415, end: 20090420
  2. CYCLOSPORINE [Concomitant]
  3. ACETAMINOPHEN [Concomitant]
  4. HYDROCORTISONE [Concomitant]
  5. CHLORPHENIRAMINE MALEATE [Concomitant]
  6. CODEINE SUL TAB [Concomitant]
  7. CO-DYDRAMMOL (DIHYDROCODEINE BITARTRATE, PARACETAMOL) [Concomitant]
  8. OMEPRAZOLE [Concomitant]
  9. PREDNISOLONE [Concomitant]
  10. DOSULEPIN (DOSULEPIN) [Concomitant]
  11. MEROPENEM (MEROPENEM) [Concomitant]
  12. VANCOMYCIN [Concomitant]
  13. INTRACONOZOLE [Concomitant]
  14. METHYLPREDNISOLONE 16MG TAB [Concomitant]

REACTIONS (4)
  - CHEST PAIN [None]
  - NEUTROPENIC SEPSIS [None]
  - RENAL FAILURE ACUTE [None]
  - RESPIRATORY DISTRESS [None]
